FAERS Safety Report 24645800 (Version 2)
Quarter: 2024Q4

REPORT INFORMATION
  Report Type: Report from Study
  Country: NL (occurrence: NL)
  Receive Date: 20241121
  Receipt Date: 20241128
  Transmission Date: 20250115
  Serious: Yes (Hospitalization)
  Sender: ABBVIE
  Company Number: NL-ABBVIE-6011786

PATIENT
  Age: 71 Year
  Sex: Female

DRUGS (6)
  1. CARBIDOPA\LEVODOPA [Suspect]
     Active Substance: CARBIDOPA\LEVODOPA
     Indication: Parkinson^s disease
     Dosage: MD:8.5ML; CD:1.6ML/H; ED:1.5ML REMAINS AT 16 HOURS
     Route: 050
     Dates: start: 20240516, end: 20240529
  2. CARBIDOPA\LEVODOPA [Suspect]
     Active Substance: CARBIDOPA\LEVODOPA
     Dosage: MD:8.5ML; CD:1.7ML/H; ED:1.5ML  REMAINS AT 16 HOURS.
     Route: 050
     Dates: start: 20241121
  3. CARBIDOPA\LEVODOPA [Suspect]
     Active Substance: CARBIDOPA\LEVODOPA
     Route: 050
     Dates: start: 20211108
  4. CARBIDOPA\LEVODOPA [Suspect]
     Active Substance: CARBIDOPA\LEVODOPA
     Dosage: CD:1.7ML/H  REMAINS AT 16 HOURS.
     Route: 050
     Dates: start: 20240529, end: 20241121
  5. PRAMIPEXOLE [Concomitant]
     Active Substance: PRAMIPEXOLE\PRAMIPEXOLE DIHYDROCHLORIDE
     Indication: Product used for unknown indication
     Dosage: POSSIBLY TAPERING FORM STRENGTH: 2.62 MILLIGRAM
     Route: 048
  6. BENSERAZIDE HYDROCHLORIDE\LEVODOPA [Concomitant]
     Active Substance: BENSERAZIDE HYDROCHLORIDE\LEVODOPA
     Indication: Parkinson^s disease
     Dosage: AT 6AM, AT 9AM, AT 12PM, AT 3PM, AT 6PM FORM STRENGTH: 125 MILLIGRAM
     Route: 048
     Dates: end: 20211108

REACTIONS (15)
  - Fall [Not Recovered/Not Resolved]
  - Medical device site fistula [Not Recovered/Not Resolved]
  - Unintentional medical device removal [Unknown]
  - On and off phenomenon [Not Recovered/Not Resolved]
  - Stoma site pain [Not Recovered/Not Resolved]
  - Stoma site erythema [Not Recovered/Not Resolved]
  - Medical device discomfort [Not Recovered/Not Resolved]
  - Tension [Not Recovered/Not Resolved]
  - Papule [Not Recovered/Not Resolved]
  - Stoma site pain [Not Recovered/Not Resolved]
  - Stoma site hypergranulation [Not Recovered/Not Resolved]
  - Device issue [Not Recovered/Not Resolved]
  - Loss of personal independence in daily activities [Not Recovered/Not Resolved]
  - Pain [Not Recovered/Not Resolved]
  - Dyskinesia [Not Recovered/Not Resolved]

NARRATIVE: CASE EVENT DATE: 20241101
